FAERS Safety Report 18368690 (Version 2)
Quarter: 2021Q1

REPORT INFORMATION
  Report Type: Spontaneous
  Country: BR (occurrence: BR)
  Receive Date: 20201010
  Receipt Date: 20210219
  Transmission Date: 20210419
  Serious: Yes (Hospitalization, Other)
  Sender: FDA-Public Use
  Company Number: BR-LUPIN PHARMACEUTICALS INC.-2020-06973

PATIENT
  Age: 26 Year
  Sex: Male
  Weight: 76 kg

DRUGS (3)
  1. TRENBOLONE ACETATE [Suspect]
     Active Substance: TRENBOLONE ACETATE
     Indication: PRODUCT USED FOR UNKNOWN INDICATION
     Dosage: UNK (HE TOOK HIGHER DOSES OF ANDROGENIC ANABOLIC STEROIDS AT 600MG EVERY WEEK (2400 MG/MONTH) [DOSAG
     Route: 065
  2. STANOZOLOL [Suspect]
     Active Substance: STANOZOLOL
     Indication: PRODUCT USED FOR UNKNOWN INDICATION
     Dosage: UNK (HE TOOK HIGHER DOSES OF ANDROGENIC ANABOLIC STEROIDS AT 600MG EVERY WEEK (2400 MG/MONTH) (DOSAG
     Route: 065
  3. TESTOSTERONE. [Suspect]
     Active Substance: TESTOSTERONE
     Indication: INTENTIONAL PRODUCT MISUSE
     Dosage: HE TOOK HIGHER DOSES OF ANDROGENIC ANABOLIC STEROIDS AT 600MG EVERY WEEK (2400 MG/MONTH) (DOSAGE OF
     Route: 065

REACTIONS (10)
  - Acute myocardial infarction [Recovering/Resolving]
  - Irritability [Recovered/Resolved]
  - Hepatic enzyme increased [Unknown]
  - Myocardial necrosis [Recovered/Resolved]
  - Ventricular dysfunction [Recovered/Resolved]
  - Anxiety [Recovered/Resolved]
  - C-reactive protein increased [Recovered/Resolved]
  - Stress at work [Recovered/Resolved]
  - Dyslipidaemia [Recovered/Resolved]
  - Intentional product misuse [Recovering/Resolving]
